FAERS Safety Report 7857276-8 (Version None)
Quarter: 2011Q4

REPORT INFORMATION
  Report Type: 
  Country: None (occurrence: None)
  Receive Date: 20111027
  Receipt Date: 20111019
  Transmission Date: 20120403
  Serious: Yes (Hospitalization)
  Sender: FDA-Public Use
  Company Number: US-BIOGENIDEC-2011BI039928

PATIENT
  Age: 24 Year
  Sex: Female

DRUGS (2)
  1. AMPYRA [Concomitant]
     Indication: MUSCULAR WEAKNESS
  2. AVONEX [Suspect]
     Indication: MULTIPLE SCLEROSIS
     Route: 030
     Dates: start: 20080921

REACTIONS (6)
  - MULTIPLE SCLEROSIS RELAPSE [None]
  - TREMOR [None]
  - FATIGUE [None]
  - MUSCULAR WEAKNESS [None]
  - LIGAMENT RUPTURE [None]
  - INJECTION SITE HAEMATOMA [None]
